FAERS Safety Report 13521688 (Version 1)
Quarter: 2017Q2

REPORT INFORMATION
  Report Type: Spontaneous
  Country: US (occurrence: US)
  Receive Date: 20170507
  Receipt Date: 20170507
  Transmission Date: 20170830
  Serious: Yes (Other)
  Sender: FDA-Public Use
  Company Number: None

PATIENT
  Age: 50 Year
  Sex: Female
  Weight: 56.25 kg

DRUGS (7)
  1. ZOLPIDEM TARTRATE 10 MG [Suspect]
     Active Substance: ZOLPIDEM TARTRATE
     Indication: INSOMNIA
     Dosage: ?          QUANTITY:1 TABLET(S);?
     Route: 048
     Dates: start: 20170505, end: 20170507
  2. MAGNISIUM [Concomitant]
  3. VITAMIN B COMPLEX [Concomitant]
     Active Substance: CYANOCOBALAMIN\DEXPANTHENOL\NIACINAMIDE\PYRIDOXINE HYDROCHLORIDE\RIBOFLAVIN 5^-PHOSPHATE SODIUM\THIAMINE HYDROCHLORIDE\VITAMIN B COMPLEX
  4. SYNTHROID [Concomitant]
     Active Substance: LEVOTHYROXINE SODIUM
  5. VITAMIN D [Concomitant]
     Active Substance: CHOLECALCIFEROL
  6. ESTROGEN [Concomitant]
     Active Substance: ESTROGENS
  7. PROMETRIUM [Concomitant]
     Active Substance: PROGESTERONE

REACTIONS (6)
  - Anxiety [None]
  - Insomnia [None]
  - Drug ineffective [None]
  - Product substitution issue [None]
  - Peripheral swelling [None]
  - Agitation [None]

NARRATIVE: CASE EVENT DATE: 20170505
